FAERS Safety Report 4974752-6 (Version None)
Quarter: 2006Q2

REPORT INFORMATION
  Report Type: 
  Country: None (occurrence: None)
  Receive Date: 20060417
  Receipt Date: 20051025
  Transmission Date: 20061013
  Serious: Yes (Hospitalization, Disabling)
  Sender: FDA-Public Use
  Company Number: US-MERCK-0510USA09269

PATIENT
  Age: 60 Year
  Sex: Female
  Weight: 68 kg

DRUGS (10)
  1. VIOXX [Suspect]
     Indication: PAIN IN EXTREMITY
     Route: 048
     Dates: start: 20010601, end: 20040720
  2. PRINIVIL [Concomitant]
     Route: 065
  3. GLUCOPHAGE [Concomitant]
     Route: 065
  4. INSULIN [Concomitant]
     Route: 065
  5. ZOCOR [Concomitant]
     Route: 065
  6. AMBIEN [Concomitant]
     Route: 065
  7. ASPIRIN [Concomitant]
     Route: 065
  8. VITAMIN E [Concomitant]
     Route: 065
  9. CALCIUM (UNSPECIFIED) [Concomitant]
     Route: 065
  10. VITAMINS (UNSPECIFIED) [Concomitant]
     Route: 065

REACTIONS (15)
  - CARDIAC FAILURE CONGESTIVE [None]
  - CARDIOVASCULAR DISORDER [None]
  - CEREBROVASCULAR ACCIDENT [None]
  - CORONARY ARTERY DISEASE [None]
  - DEPRESSION [None]
  - DIABETES MELLITUS [None]
  - HYPERTENSION [None]
  - MITRAL VALVE INCOMPETENCE [None]
  - NEUROPATHY PERIPHERAL [None]
  - PERIPHERAL VASCULAR DISORDER [None]
  - PULMONARY EMBOLISM [None]
  - RENAL FAILURE [None]
  - SEASONAL ALLERGY [None]
  - VITREOUS HAEMORRHAGE [None]
  - WHEEZING [None]
